FAERS Safety Report 18422264 (Version 1)
Quarter: 2020Q4

REPORT INFORMATION
  Report Type: Spontaneous
  Country: JP (occurrence: JP)
  Receive Date: 20201023
  Receipt Date: 20201023
  Transmission Date: 20210114
  Serious: Yes (Other)
  Sender: FDA-Public Use
  Company Number: JP-FERRINGPH-2020FE07363

PATIENT
  Sex: Male

DRUGS (1)
  1. GONAX [Suspect]
     Active Substance: DEGARELIX
     Indication: PROSTATE CANCER
     Dosage: 480 MG, EVERY 12 WEEKS
     Route: 058

REACTIONS (4)
  - Face oedema [Unknown]
  - Incorrect dose administered [Unknown]
  - Oedema peripheral [Unknown]
  - Off label use [Unknown]
